FAERS Safety Report 24444515 (Version 2)
Quarter: 2024Q4

REPORT INFORMATION
  Report Type: Report from Study
  Country: US (occurrence: US)
  Receive Date: 20241016
  Receipt Date: 20241017
  Transmission Date: 20250115
  Serious: No
  Sender: ROCHE
  Company Number: US-ROCHE-2821790

PATIENT
  Age: 59 Year
  Sex: Male

DRUGS (12)
  1. RITUXAN [Suspect]
     Active Substance: RITUXIMAB
     Indication: Ataxia
     Dosage: (STRENGTH: 500MG/50ML) (100 ML) ANTICIPATED DATE OF TREATMENT WAS 13/ NOV/2023
     Route: 042
     Dates: start: 2020
  2. RITUXAN [Suspect]
     Active Substance: RITUXIMAB
     Indication: Stiff person syndrome
  3. RITUXAN [Suspect]
     Active Substance: RITUXIMAB
     Indication: Antibody test positive
  4. ASPIRIN [Concomitant]
     Active Substance: ASPIRIN
     Route: 048
  5. ACETAMINOPHEN [Concomitant]
     Active Substance: ACETAMINOPHEN
     Route: 048
  6. LIPITOR [Concomitant]
     Active Substance: ATORVASTATIN CALCIUM
     Dosage: EVERY MORNING
     Route: 048
  7. LIORESAL [Concomitant]
     Active Substance: BACLOFEN
     Route: 048
  8. BANOPHEN [Concomitant]
     Active Substance: DIPHENHYDRAMINE HYDROCHLORIDE
     Route: 048
  9. BARACLUDE [Concomitant]
     Active Substance: ENTECAVIR
     Dosage: EVERY MORNING
     Route: 048
  10. PRINIVIL [Concomitant]
     Active Substance: LISINOPRIL
     Dosage: EVERY MORNING
     Route: 048
  11. SODIUM CHLORIDE [Concomitant]
     Active Substance: SODIUM CHLORIDE
     Dosage: INJECT INTO VEIN
  12. GLUCOPHAGE [Concomitant]
     Active Substance: METFORMIN HYDROCHLORIDE
     Route: 048

REACTIONS (2)
  - Off label use [Unknown]
  - No adverse event [Unknown]

NARRATIVE: CASE EVENT DATE: 20200101
